FAERS Safety Report 6962769-1 (Version None)
Quarter: 2010Q3

REPORT INFORMATION
  Report Type: 
  Country: None (occurrence: None)
  Receive Date: 20100902
  Receipt Date: 20100823
  Transmission Date: 20110219
  Serious: Yes (Death, Other)
  Sender: FDA-Public Use
  Company Number: GB-PFIZER INC-2010107212

PATIENT
  Age: 41 Year
  Sex: Male

DRUGS (3)
  1. SERTRALINE HYDROCHLORIDE [Suspect]
     Dosage: UNK
  2. CLOZAPINE [Suspect]
     Dosage: 650 MG DAILY
  3. AMITRIPTYLINE [Suspect]
     Dosage: UNK

REACTIONS (3)
  - DRUG TOXICITY [None]
  - EPILEPSY [None]
  - GASTROINTESTINAL HYPOMOTILITY [None]
